FAERS Safety Report 23370610 (Version 2)
Quarter: 2024Q1

REPORT INFORMATION
  Report Type: Spontaneous
  Country: US (occurrence: US)
  Receive Date: 20240105
  Receipt Date: 20240131
  Transmission Date: 20240410
  Serious: No
  Sender: FDA-Public Use
  Company Number: US-SA-SAC20231229000499

PATIENT
  Age: 50 Year
  Sex: Female

DRUGS (3)
  1. DUPIXENT [Suspect]
     Active Substance: DUPILUMAB
     Indication: Dermatitis atopic
     Dosage: 300 MG, QOW
     Route: 058
     Dates: start: 20230824, end: 202401
  2. IODINE [Concomitant]
     Active Substance: IODINE
     Dosage: UNK
  3. IRON [Concomitant]
     Active Substance: IRON
     Indication: Iron deficiency anaemia

REACTIONS (7)
  - Dermatitis atopic [Unknown]
  - Rash [Unknown]
  - Discomfort [Unknown]
  - Dry eye [Unknown]
  - Eye pruritus [Unknown]
  - Eye inflammation [Unknown]
  - Drug ineffective [Unknown]
